FAERS Safety Report 4513305-0 (Version None)
Quarter: 2004Q4

REPORT INFORMATION
  Report Type: 
  Country: None (occurrence: None)
  Receive Date: 20041130
  Receipt Date: 20040618
  Transmission Date: 20050328
  Serious: No
  Sender: FDA-Public Use
  Company Number: US-BRISTOL-MYERS SQUIBB COMPANY-12621173

PATIENT
  Age: 46 Year
  Sex: Male

DRUGS (9)
  1. ERBITUX [Suspect]
     Indication: COLON CANCER
     Dosage: INTERR 25-MAY-2004/DOSE REDUCED TO 400 MG ON 09-JUN-2004/INTERR 30-JUN-2004/RESTARTED 15-JUL-2004.
     Route: 042
     Dates: start: 20040504, end: 20040504
  2. ALOXI [Concomitant]
     Dates: start: 20040504, end: 20040504
  3. BENADRYL [Concomitant]
     Dates: start: 20040504, end: 20040504
  4. DEXAMETHASONE [Concomitant]
     Dates: start: 20040504, end: 20040504
  5. VITAMIN B-12 [Concomitant]
  6. ZANTAC [Concomitant]
  7. FLUOROURACIL [Concomitant]
  8. LEUCOVORIN [Concomitant]
  9. IRINOTECAN [Concomitant]

REACTIONS (1)
  - DERMATITIS ACNEIFORM [None]
